FAERS Safety Report 17100401 (Version 1)
Quarter: 2019Q4

REPORT INFORMATION
  Report Type: Spontaneous
  Country: JP (occurrence: JP)
  Receive Date: 20191202
  Receipt Date: 20191202
  Transmission Date: 20200122
  Serious: Yes (Other)
  Sender: FDA-Public Use
  Company Number: JP-BAYER-2019-212483

PATIENT
  Age: 10 Decade
  Sex: Male

DRUGS (2)
  1. STIVARGA [Suspect]
     Active Substance: REGORAFENIB
     Indication: COLON CANCER RECURRENT
     Dosage: 80 MG, QD
     Route: 048
     Dates: start: 20190516, end: 20191121
  2. STIVARGA [Suspect]
     Active Substance: REGORAFENIB
     Indication: COLON CANCER RECURRENT
     Dosage: 160 MG, QD
     Route: 048
     Dates: start: 20190426, end: 20190503

REACTIONS (2)
  - Palmar-plantar erythrodysaesthesia syndrome [Recovered/Resolved]
  - Colon cancer [Not Recovered/Not Resolved]

NARRATIVE: CASE EVENT DATE: 20190503
